FAERS Safety Report 5502481-9 (Version None)
Quarter: 2007Q4

REPORT INFORMATION
  Report Type: 
  Country: None (occurrence: None)
  Receive Date: 20071030
  Receipt Date: 20071019
  Transmission Date: 20080405
  Serious: Yes (Hospitalization)
  Sender: FDA-Public Use
  Company Number: JP-PFIZER INC-2007088058

PATIENT
  Age: 26 Year
  Sex: Female

DRUGS (7)
  1. SALAZOPYRIN [Suspect]
     Dosage: DAILY DOSE:4500MG
     Route: 048
     Dates: start: 20070719, end: 20070101
  2. MESALAMINE [Suspect]
     Route: 048
  3. SAIREI-TO [Suspect]
     Dosage: DAILY DOSE:9MG
     Route: 048
  4. THIATON [Concomitant]
     Dates: start: 20070816
  5. LAFUTIDINE [Concomitant]
     Dates: start: 20070816
  6. PRIMPERAN [Concomitant]
     Dates: start: 20070816
  7. PREDONINE [Concomitant]

REACTIONS (2)
  - PSEUDOMEMBRANOUS COLITIS [None]
  - VOMITING [None]
